FAERS Safety Report 7257636-2 (Version None)
Quarter: 2011Q1

REPORT INFORMATION
  Report Type: 
  Country: None (occurrence: None)
  Receive Date: 20110129
  Receipt Date: 20100519
  Transmission Date: 20110831
  Serious: No
  Sender: FDA-Public Use
  Company Number: US-ABBOTT-10P-163-0641956-00

PATIENT
  Sex: Female
  Weight: 68.1 kg

DRUGS (6)
  1. HUMIRA [Suspect]
     Indication: RHEUMATOID ARTHRITIS
     Route: 058
  2. DARVOCET-N 100 [Concomitant]
     Indication: PAIN
  3. UNKNOWN BP MED [Concomitant]
     Indication: HYPERTENSION
  4. METHOTREXATE [Concomitant]
     Indication: RHEUMATOID ARTHRITIS
     Route: 048
  5. FOLIC ACID [Concomitant]
     Indication: PRODUCT USED FOR UNKNOWN INDICATION
  6. NAPROSYN [Concomitant]
     Indication: PAIN
     Dosage: PRN UP TO 1000 MG/DAY

REACTIONS (1)
  - WRONG TECHNIQUE IN DRUG USAGE PROCESS [None]
